FAERS Safety Report 11274711 (Version 2)
Quarter: 2015Q4

REPORT INFORMATION
  Report Type: Spontaneous
  Country: US (occurrence: US)
  Receive Date: 20150716
  Receipt Date: 20151221
  Transmission Date: 20160304
  Serious: Yes (Hospitalization, Other)
  Sender: FDA-Public Use
  Company Number: US-HOSPIRA-2936114

PATIENT
  Age: 57 Year
  Sex: Male
  Weight: 98 kg

DRUGS (5)
  1. DEPO-MEDROL [Suspect]
     Active Substance: METHYLPREDNISOLONE ACETATE
     Indication: ARTHRITIS
     Route: 014
     Dates: start: 20150217
  2. LIDOCAINE HYDROCHLORIDE. [Suspect]
     Active Substance: LIDOCAINE HYDROCHLORIDE
     Indication: ARTHRITIS
     Route: 014
     Dates: start: 20150217
  3. DEPO-MEDROL [Suspect]
     Active Substance: METHYLPREDNISOLONE ACETATE
     Indication: OSTEOARTHRITIS
     Route: 014
     Dates: start: 20150217
  4. CYMBALTA [Concomitant]
     Active Substance: DULOXETINE HYDROCHLORIDE
     Indication: PRODUCT USED FOR UNKNOWN INDICATION
     Dosage: TOTAL DOSE: 40 MG
  5. LIDOCAINE HYDROCHLORIDE. [Suspect]
     Active Substance: LIDOCAINE HYDROCHLORIDE
     Indication: ARTHRITIS
     Route: 014
     Dates: start: 20150217

REACTIONS (7)
  - Staphylococcal infection [Not Recovered/Not Resolved]
  - Arthritis bacterial [Recovering/Resolving]
  - Pyrexia [Unknown]
  - Injection site pain [Unknown]
  - Abscess [Not Recovered/Not Resolved]
  - Urticaria [Recovered/Resolved]
  - Flushing [Recovered/Resolved]

NARRATIVE: CASE EVENT DATE: 201502
